FAERS Safety Report 25584929 (Version 1)
Quarter: 2025Q3

REPORT INFORMATION
  Report Type: Spontaneous
  Country: EU (occurrence: EU)
  Receive Date: 20250721
  Receipt Date: 20250721
  Transmission Date: 20251021
  Serious: Yes (Hospitalization)
  Sender: SOLARIS PHARMA CORPORATION
  Company Number: EU-SPC-000659

PATIENT
  Age: 15 Year
  Sex: Male

DRUGS (12)
  1. CLINDAMYCIN [Suspect]
     Active Substance: CLINDAMYCIN
     Indication: Septic shock
     Route: 065
  2. AMOXICILLIN [Suspect]
     Active Substance: AMOXICILLIN
     Indication: Septic shock
     Route: 065
  3. MIDAZOLAM [Suspect]
     Active Substance: MIDAZOLAM
     Indication: Septic shock
     Route: 065
  4. MORPHINE [Suspect]
     Active Substance: MORPHINE
     Indication: Septic shock
     Route: 065
  5. OSELTAMIVIR [Concomitant]
     Active Substance: OSELTAMIVIR
     Indication: Antiviral treatment
     Route: 065
  6. HYDROCORTISONE [Concomitant]
     Active Substance: HYDROCORTISONE
     Indication: Vasopressive therapy
     Route: 065
  7. EPINEPHRINE [Concomitant]
     Active Substance: EPINEPHRINE
     Indication: Vasopressive therapy
     Route: 065
  8. NOREPINEPHRINE [Concomitant]
     Active Substance: NOREPINEPHRINE
     Indication: Vasopressive therapy
     Route: 065
  9. VASOPRESSIN [Concomitant]
     Active Substance: VASOPRESSIN
     Indication: Vasopressive therapy
     Route: 065
  10. CLINDAMYCIN [Suspect]
     Active Substance: CLINDAMYCIN
     Indication: Multiple organ dysfunction syndrome
     Route: 065
  11. AMOXICILLIN [Suspect]
     Active Substance: AMOXICILLIN
     Indication: Multiple organ dysfunction syndrome
     Route: 065
  12. MIDAZOLAM [Suspect]
     Active Substance: MIDAZOLAM
     Indication: Multiple organ dysfunction syndrome
     Route: 065

REACTIONS (2)
  - Product use in unapproved indication [Unknown]
  - Drug ineffective [Unknown]
